FAERS Safety Report 9007792 (Version 1)
Quarter: 2013Q1

REPORT INFORMATION
  Report Type: Spontaneous
  Country: US (occurrence: US)
  Receive Date: 20130111
  Receipt Date: 20130111
  Transmission Date: 20140127
  Serious: Yes (Other)
  Sender: FDA-Public Use
  Company Number: US-AMGEN-USASP2013000425

PATIENT
  Age: 48 Year
  Sex: Male

DRUGS (1)
  1. SENSIPAR [Suspect]
     Indication: HYPERPARATHYROIDISM SECONDARY
     Dosage: 60 MG, QD
     Dates: start: 2012

REACTIONS (5)
  - Gastrointestinal haemorrhage [Unknown]
  - Gastrointestinal disorder [Unknown]
  - Blood parathyroid hormone increased [Unknown]
  - Gastrointestinal tract irritation [Unknown]
  - Treatment noncompliance [Unknown]
